FAERS Safety Report 8887734 (Version 1)
Quarter: 2012Q4

REPORT INFORMATION
  Report Type: 
  Country: US (occurrence: US)
  Receive Date: 20121106
  Receipt Date: 20121106
  Transmission Date: 20130627
  Serious: No
  Sender: FDA-Public Use
  Company Number: US-ASTRAZENECA-2012SE18112

PATIENT
  Age: 62 Year
  Sex: Female

DRUGS (38)
  1. ATENOLOL [Suspect]
     Route: 048
  2. TOPROL XL [Concomitant]
     Route: 048
  3. TOPROL XL [Concomitant]
     Route: 048
  4. PRILOSEC [Concomitant]
     Route: 048
  5. ACIDOPHILUS/B.BIFIDUM-B.LONGUM [Concomitant]
     Dosage: 240 MG (3 BILLLION CELL)
     Route: 048
  6. ALOE VERA [Concomitant]
     Indication: SUPPLEMENTATION THERAPY
     Dosage: TAKE 4 OZ BY MOUTH TWO TIMES DAILY
     Route: 048
  7. ASCORBIC ACID MULTIVITS-MIN [Concomitant]
     Route: 048
  8. CALCIUM CHOLECALCIFEROL [Concomitant]
     Dosage: 600 MG CALCIUM-200 DAILY UNIT, TWO CAPSULES BY MOUTH ONCE DAILY
     Route: 048
  9. SOMA [Concomitant]
     Route: 048
  10. ZONALON [Concomitant]
     Route: 061
  11. FERROUS SULFATE [Concomitant]
     Route: 048
  12. LIDEX [Concomitant]
     Route: 061
  13. GARLIC [Concomitant]
     Route: 048
  14. GLUCOSAMINE HCL [Concomitant]
     Route: 048
  15. HCTZ [Concomitant]
     Route: 048
  16. HCTZ [Concomitant]
     Route: 048
  17. MAGNESIUM [Concomitant]
     Route: 048
  18. MAGNESIUM [Concomitant]
     Dosage: 80, DAILY
  19. MAGNESIUM [Concomitant]
  20. MELATONIN [Concomitant]
     Route: 048
  21. MILK THISTLE [Concomitant]
     Route: 048
  22. CENTRUM SILVER [Concomitant]
     Route: 048
  23. FISH OIL [Concomitant]
     Route: 048
  24. ARISTOCORT KENALOG [Concomitant]
     Route: 061
  25. COENZYME Q10 [Concomitant]
     Route: 048
  26. VITAMIN E [Concomitant]
     Route: 048
  27. CALCIUM [Concomitant]
     Dosage: 500, DAILY
  28. VITAMIN D [Concomitant]
     Dosage: 200, DAILY
  29. OSTEO BI-FLEX (OSTEO BI-FLEX) [Concomitant]
  30. VITAMIN C [Concomitant]
     Dosage: 60, DAILY
  31. SODIUM [Concomitant]
  32. ACAI ENERGY BOOST [Concomitant]
     Dosage: AS DIRECTED
  33. ACAI WITH GREEN TEA [Concomitant]
     Dosage: AS DIRECTED
  34. HI-LIPASE STOMACH [Concomitant]
     Dosage: 500, TWO TABLETS AM AND PM
  35. CASCERA SAGRADA COLON [Concomitant]
  36. LBS TWO LOWER BOWEL [Concomitant]
  37. RASPBERRY KETONE [Concomitant]
     Dosage: 500 TWO TABLETS AM AND PM
  38. BLACK CHERRY [Concomitant]
     Dosage: 3 TABLESPOONS WITH 10 OUNCES OF WATER

REACTIONS (1)
  - Drug hypersensitivity [Unknown]
